FAERS Safety Report 24587151 (Version 2)
Quarter: 2024Q4

REPORT INFORMATION
  Report Type: Spontaneous
  Country: JP (occurrence: JP)
  Receive Date: 20241107
  Receipt Date: 20241120
  Transmission Date: 20250114
  Serious: Yes (Death, Other)
  Sender: ABBVIE
  Company Number: JP-ABBVIE-5979972

PATIENT
  Age: 50 Year
  Sex: Male

DRUGS (1)
  1. RINVOQ [Suspect]
     Active Substance: UPADACITINIB
     Indication: Colitis ulcerative
     Dosage: FORM STRENGTH: 15 MILLIGRAM?DURATION TEXT: 14 DAYS
     Route: 048
     Dates: start: 202301

REACTIONS (3)
  - Pulmonary embolism [Fatal]
  - Cardiac arrest [Unknown]
  - Embolism venous [Fatal]

NARRATIVE: CASE EVENT DATE: 20230101
